FAERS Safety Report 24284026 (Version 2)
Quarter: 2024Q4

REPORT INFORMATION
  Report Type: Report from Study
  Country: AR (occurrence: AR)
  Receive Date: 20240905
  Receipt Date: 20241007
  Transmission Date: 20250114
  Serious: Yes (Hospitalization)
  Sender: BIOGEN
  Company Number: AR-BIOGEN-2024BI01280646

PATIENT
  Age: 48 Year
  Sex: Male

DRUGS (4)
  1. TYSABRI [Suspect]
     Active Substance: NATALIZUMAB
     Indication: Relapsing-remitting multiple sclerosis
     Route: 050
     Dates: start: 20170116
  2. TYSABRI [Suspect]
     Active Substance: NATALIZUMAB
     Dosage: LAST APPLICATION ON 19-JUL-2024
     Route: 050
     Dates: start: 20180109
  3. OLANZAPINE [Concomitant]
     Active Substance: OLANZAPINE
     Indication: Product used for unknown indication
     Route: 050
  4. Valcote (Valproate sodium) [Concomitant]
     Indication: Product used for unknown indication
     Dosage: 3 PER NIGHT
     Route: 050

REACTIONS (3)
  - Dehydration [Recovered/Resolved]
  - Drug ineffective [Recovered/Resolved]
  - Multiple sclerosis [Unknown]

NARRATIVE: CASE EVENT DATE: 20240101
